FAERS Safety Report 26042156 (Version 1)
Quarter: 2025Q4

REPORT INFORMATION
  Report Type: Spontaneous
  Country: JP (occurrence: JP)
  Receive Date: 20251113
  Receipt Date: 20251113
  Transmission Date: 20260119
  Serious: Yes (Other)
  Sender: ALEXION PHARMACEUTICALS
  Company Number: JP-AstraZeneca-CH-00967663A

PATIENT
  Age: 78 Year
  Sex: Male
  Weight: 42.9 kg

DRUGS (5)
  1. IMFINZI [Suspect]
     Active Substance: DURVALUMAB
     Indication: Bile duct cancer
     Dosage: 1500 MG, PERIPHERAL UP TO THE 3RD COURSE, PORT FROM THE 4TH COURSE
     Route: 065
  2. MAGNESIUM OXIDE [Concomitant]
     Active Substance: MAGNESIUM OXIDE
     Route: 065
  3. URSO [Concomitant]
     Active Substance: URSODIOL
     Route: 065
  4. Clopido [Concomitant]
     Route: 065
  5. AZILSARTAN KAMEDOXOMIL [Concomitant]
     Active Substance: AZILSARTAN KAMEDOXOMIL

REACTIONS (4)
  - Febrile neutropenia [Recovered/Resolved]
  - Immune-mediated cholangitis [Recovering/Resolving]
  - Liver disorder [Unknown]
  - Immune-mediated hepatitis [Recovered/Resolved]
